FAERS Safety Report 6128001-6 (Version None)
Quarter: 2009Q1

REPORT INFORMATION
  Report Type: 
  Country: None (occurrence: None)
  Receive Date: 20090323
  Receipt Date: 20090311
  Transmission Date: 20090719
  Serious: Yes (Other)
  Sender: FDA-Public Use
  Company Number: DE-ELI_LILLY_AND_COMPANY-DE200903002606

PATIENT
  Sex: Male

DRUGS (2)
  1. CIALIS [Suspect]
     Indication: NERVE INJURY
     Dosage: 20 MG, UNKNOWN
     Route: 065
  2. CIALIS [Suspect]
     Dosage: 10 MG (DIVIDED 20MG TABLET IN TWO), UNKNOWN
     Route: 065

REACTIONS (4)
  - BLOOD PRESSURE INCREASED [None]
  - ERYTHEMA [None]
  - HEADACHE [None]
  - VISUAL FIELD DEFECT [None]
